FAERS Safety Report 9124970 (Version 2)
Quarter: 2013Q2

REPORT INFORMATION
  Report Type: Spontaneous
  Country: US (occurrence: US)
  Receive Date: 20130227
  Receipt Date: 20130405
  Transmission Date: 20140414
  Serious: No
  Sender: FDA-Public Use
  Company Number: US-PFIZER INC-2012129111

PATIENT
  Age: 80 Year
  Sex: Female
  Weight: 70.3 kg

DRUGS (2)
  1. LIPITOR [Suspect]
     Indication: BLOOD CHOLESTEROL INCREASED
     Dosage: 20 MG, DAILY
  2. EFFERVESCENT COLD RELIEF [Suspect]
     Indication: RHINORRHOEA
     Dosage: UNK

REACTIONS (2)
  - Drug ineffective [Unknown]
  - Nasopharyngitis [Not Recovered/Not Resolved]
